FAERS Safety Report 4313584-9 (Version None)
Quarter: 2004Q1

REPORT INFORMATION
  Report Type: 
  Country: None (occurrence: None)
  Receive Date: 20040305
  Receipt Date: 20040225
  Transmission Date: 20041129
  Serious: Yes (Other)
  Sender: FDA-Public Use
  Company Number: US-JNJFOC-20040102916

PATIENT
  Age: 36 Year
  Sex: Male
  Weight: 86.1834 kg

DRUGS (3)
  1. LEVAQUIN [Suspect]
     Indication: PROSTATE INFECTION
     Dosage: 500 MG, 1 IN 1 DAY, ORAL
     Route: 048
     Dates: start: 20031201, end: 20040101
  2. LEXAPRO (ALL OTHER THERAPEUTIC DRUGS) [Concomitant]
  3. PRILOSEC [Concomitant]

REACTIONS (8)
  - ABASIA [None]
  - ARTHRALGIA [None]
  - HYPOAESTHESIA [None]
  - NERVE INJURY [None]
  - OEDEMA PERIPHERAL [None]
  - PARAESTHESIA [None]
  - TEMPERATURE REGULATION DISORDER [None]
  - TREMOR [None]
